FAERS Safety Report 11578014 (Version 2)
Quarter: 2016Q2

REPORT INFORMATION
  Report Type: Spontaneous
  Country: FR (occurrence: FR)
  Receive Date: 20150930
  Receipt Date: 20160614
  Transmission Date: 20160815
  Serious: Yes (Hospitalization, Other)
  Sender: FDA-Public Use
  Company Number: FR-NGX_02537_2014

PATIENT
  Sex: Male
  Weight: 3 kg

DRUGS (1)
  1. QUTENZA [Suspect]
     Active Substance: CAPSAICIN
     Indication: FOETAL EXPOSURE DURING PREGNANCY
     Dosage: UNK UNK, UNKNOWN FREQ.
     Route: 064
     Dates: start: 20130906, end: 20130906

REACTIONS (5)
  - Foetal growth restriction [Unknown]
  - Foetal hypokinesia [Recovered/Resolved]
  - Neonatal respiratory distress syndrome [Recovered/Resolved]
  - Feeding disorder [Unknown]
  - Hypoglycaemia [Recovered/Resolved]

NARRATIVE: CASE EVENT DATE: 201405
